FAERS Safety Report 18168331 (Version 1)
Quarter: 2020Q3

REPORT INFORMATION
  Report Type: Spontaneous
  Country: US (occurrence: US)
  Receive Date: 20200818
  Receipt Date: 20200818
  Transmission Date: 20201103
  Serious: Yes (Hospitalization)
  Sender: FDA-Public Use
  Company Number: None

PATIENT
  Age: 71 Year
  Sex: Female

DRUGS (11)
  1. AMLODIPINE [Concomitant]
     Active Substance: AMLODIPINE BESYLATE
  2. WARFARIN [Concomitant]
     Active Substance: WARFARIN
  3. TACROLIMUS 0.5MG CAP [Suspect]
     Active Substance: TACROLIMUS
     Indication: RENAL TRANSPLANT
     Dosage: ?          OTHER DOSE:1?2 MG;?
     Dates: start: 20140319
  4. ENOXAPARIN [Concomitant]
     Active Substance: ENOXAPARIN
  5. FEXOFENADINE [Concomitant]
     Active Substance: FEXOFENADINE HYDROCHLORIDE
  6. SMZ/TMP DS [Concomitant]
     Active Substance: SULFAMETHOXAZOLE\TRIMETHOPRIM
  7. METRONIDAZOL [Concomitant]
     Active Substance: METRONIDAZOLE
  8. PROGRAF [Concomitant]
     Active Substance: TACROLIMUS
  9. ZINC 15 [Concomitant]
  10. BIOTIN [Concomitant]
     Active Substance: BIOTIN
  11. CALCITRIOL. [Concomitant]
     Active Substance: CALCITRIOL

REACTIONS (1)
  - Urinary tract infection [None]

NARRATIVE: CASE EVENT DATE: 20200817
